FAERS Safety Report 5806451-2 (Version None)
Quarter: 2008Q3

REPORT INFORMATION
  Report Type: 
  Country: None (occurrence: None)
  Receive Date: 20080710
  Receipt Date: 20080630
  Transmission Date: 20090109
  Serious: Yes (Other)
  Sender: FDA-Public Use
  Company Number: JP-PFIZER INC-2008055078

PATIENT
  Age: 64 Year
  Sex: Female

DRUGS (2)
  1. SULPERAZON [Suspect]
     Indication: CHOLANGITIS
     Route: 042
  2. ANTIBIOTICS [Concomitant]

REACTIONS (1)
  - NEPHRITIS INTERSTITIAL [None]
